FAERS Safety Report 4631484-1 (Version None)
Quarter: 2005Q2

REPORT INFORMATION
  Report Type: 
  Country: None (occurrence: None)
  Receive Date: 20050407
  Receipt Date: 20050324
  Transmission Date: 20051028
  Serious: No
  Sender: FDA-Public Use
  Company Number: 02100-JPN-05-0084

PATIENT
  Age: 70 Year
  Sex: Male

DRUGS (5)
  1. CILOSTAZOL [Suspect]
     Indication: CEREBRAL INFARCTION
     Dosage: 200 MG ORAL
     Route: 048
     Dates: start: 20050216
  2. FAROPENEM SODIUM [Concomitant]
  3. FEXOFENADINE HYDROCHLORIDE [Concomitant]
  4. GOSHA-JINKI-GAN [Concomitant]
  5. BROTIZOLAM [Concomitant]

REACTIONS (4)
  - CEREBROVASCULAR ACCIDENT [None]
  - HALLUCINATION [None]
  - MENTAL DISORDER DUE TO A GENERAL MEDICAL CONDITION [None]
  - PAIN [None]
